FAERS Safety Report 5209714-7 (Version None)
Quarter: 2007Q1

REPORT INFORMATION
  Report Type: 
  Country: None (occurrence: None)
  Receive Date: 20070111
  Receipt Date: 20061211
  Transmission Date: 20070707
  Serious: Yes (Other)
  Sender: FDA-Public Use
  Company Number: 2006SP008129

PATIENT
  Age: 42 Year
  Sex: Female

DRUGS (4)
  1. BETAMETHASONE [Suspect]
     Dosage: 35 MG; PO; 2 MG; QD; PO;  0.5 MG; QD; PO
     Route: 048
     Dates: start: 20060701
  2. BETAMETHASONE [Suspect]
     Dosage: 35 MG; PO; 2 MG; QD; PO;  0.5 MG; QD; PO
     Route: 048
     Dates: start: 20060901
  3. BETAMETHASONE [Suspect]
     Dosage: 35 MG; PO; 2 MG; QD; PO;  0.5 MG; QD; PO
     Route: 048
     Dates: start: 20060901
  4. DOSTINEX (CON.) [Concomitant]

REACTIONS (1)
  - DRUG EXPOSURE DURING PREGNANCY [None]
